FAERS Safety Report 21415704 (Version 2)
Quarter: 2022Q4

REPORT INFORMATION
  Report Type: Report from Study
  Country: AR (occurrence: AR)
  Receive Date: 20221006
  Receipt Date: 20221118
  Transmission Date: 20230112
  Serious: Yes (Hospitalization, Other)
  Sender: FDA-Public Use
  Company Number: AR-NOVARTISPH-NVSC2022AR062596

PATIENT
  Age: 64 Year
  Sex: Female

DRUGS (4)
  1. KISQALI [Suspect]
     Active Substance: RIBOCICLIB
     Indication: Breast cancer metastatic
     Dosage: 200 MG, QD (3 TABLETS DAILY, BY MOUTH)
     Route: 048
     Dates: start: 202111, end: 20220920
  2. KISQALI [Suspect]
     Active Substance: RIBOCICLIB
     Indication: Metastases to spine
     Dosage: 600 MG, QD (BY MOUTH)
     Route: 048
     Dates: start: 20211202
  3. KISQALI [Suspect]
     Active Substance: RIBOCICLIB
     Dosage: 200 MG, TID
     Route: 065
     Dates: start: 20211221
  4. LETROZOLE [Suspect]
     Active Substance: LETROZOLE
     Indication: Metastases to spine
     Dosage: 1 X 2.5 MG DAILY (APPROXIMATELY BY THE END OF AUG-2022)
     Route: 065
     Dates: start: 202111

REACTIONS (9)
  - Vomiting [Unknown]
  - Diarrhoea [Unknown]
  - Metastasis [Unknown]
  - Neoplasm [Unknown]
  - Shock [Unknown]
  - Condition aggravated [Unknown]
  - Headache [Unknown]
  - Dizziness [Unknown]
  - Product use in unapproved indication [Unknown]

NARRATIVE: CASE EVENT DATE: 20220921
